FAERS Safety Report 23942151 (Version 1)
Quarter: 2024Q2

REPORT INFORMATION
  Report Type: Spontaneous
  Country: US (occurrence: None)
  Receive Date: 20240604
  Receipt Date: 20240604
  Transmission Date: 20240716
  Serious: Yes (Hospitalization)
  Sender: FDA-Public Use
  Company Number: None

PATIENT
  Age: 82 Year
  Sex: Female
  Weight: 63.4 kg

DRUGS (1)
  1. PROLIA [Suspect]
     Active Substance: DENOSUMAB
     Indication: Osteoporosis
     Dosage: OTHER FREQUENCY : ONCE EVERY 6 MONTH;?
     Route: 058
     Dates: start: 20240507, end: 20240530

REACTIONS (6)
  - Chest discomfort [None]
  - Heart rate irregular [None]
  - Dehydration [None]
  - Leukocytosis [None]
  - Blood calcium decreased [None]
  - Cardiomyopathy [None]

NARRATIVE: CASE EVENT DATE: 20240514
